FAERS Safety Report 25367248 (Version 1)
Quarter: 2025Q2

REPORT INFORMATION
  Report Type: Spontaneous
  Country: CN (occurrence: CN)
  Receive Date: 20250528
  Receipt Date: 20250528
  Transmission Date: 20250716
  Serious: Yes (Other)
  Sender: SANOFI AVENTIS
  Company Number: CN-SA-2025SA147533

PATIENT
  Age: 75 Year
  Sex: Female
  Weight: 46 kg

DRUGS (1)
  1. INSULIN GLARGINE [Suspect]
     Active Substance: INSULIN GLARGINE
     Indication: Blood glucose increased
     Dosage: 16 U, QD
     Route: 058
     Dates: start: 20250517, end: 20250517

REACTIONS (1)
  - Perineal swelling [Recovered/Resolved]

NARRATIVE: CASE EVENT DATE: 20250517
